FAERS Safety Report 20356119 (Version 1)
Quarter: 2022Q1

REPORT INFORMATION
  Report Type: Spontaneous
  Country: US (occurrence: US)
  Receive Date: 20220120
  Receipt Date: 20220120
  Transmission Date: 20220424
  Serious: No
  Sender: FDA-Public Use
  Company Number: US-PFIZER INC-2021611838

PATIENT
  Age: 59 Year
  Sex: Female
  Weight: 57.506 kg

DRUGS (8)
  1. XELJANZ XR [Suspect]
     Active Substance: TOFACITINIB CITRATE
     Indication: Rheumatoid arthritis
     Dosage: 11 MG, DAILY
     Route: 048
     Dates: start: 202009
  2. HYDROXYCHLOROQUINE SULFATE [Concomitant]
     Active Substance: HYDROXYCHLOROQUINE SULFATE
     Dosage: UNK
  3. METHOTREXATE [Concomitant]
     Active Substance: METHOTREXATE
     Dosage: 100 % POWDER
  4. MAGNESIUM [Concomitant]
     Active Substance: MAGNESIUM
     Dosage: 100 MG TABLET
  5. VITAMIN D NOS [Concomitant]
     Active Substance: VITAMIN D NOS
     Dosage: 10 UG
  6. XELJANZ [Concomitant]
     Active Substance: TOFACITINIB CITRATE
     Dosage: UNK
  7. VITAMIN E [Concomitant]
     Active Substance: .ALPHA.-TOCOPHEROL
     Dosage: 100% LIQUID
  8. CALCIUM [Concomitant]
     Active Substance: CALCIUM
     Dosage: 500(1250) TAB CHEW

REACTIONS (1)
  - Dizziness [Recovering/Resolving]
